FAERS Safety Report 5635866-0 (Version None)
Quarter: 2008Q1

REPORT INFORMATION
  Report Type: 
  Country: None (occurrence: None)
  Receive Date: 20080221
  Receipt Date: 20080214
  Transmission Date: 20080703
  Serious: Yes (Life-Threatening)
  Sender: FDA-Public Use
  Company Number: 2008EU000302

PATIENT
  Age: 94 Year
  Sex: Male

DRUGS (6)
  1. SOLIFENACIN(SOLIFENACIN) TABLET, 5MG [Suspect]
     Dosage: 5 MG, UID/QD, ORAL
     Route: 048
     Dates: start: 20080131, end: 20080203
  2. ASPIRIN [Suspect]
     Dosage: 75 MG, UID/QD, ORAL
     Route: 048
     Dates: end: 20080203
  3. ADCAL-D3 (COLECALCIFEROL) [Concomitant]
  4. AMLODIPINE [Concomitant]
  5. CANDESARTAN CILEXETIL [Concomitant]
  6. ACETAMINOPHEN [Concomitant]

REACTIONS (1)
  - GASTROINTESTINAL HAEMORRHAGE [None]
